FAERS Safety Report 7352836-5 (Version None)
Quarter: 2011Q1

REPORT INFORMATION
  Report Type: 
  Country: None (occurrence: None)
  Receive Date: 20110310
  Receipt Date: 20110310
  Transmission Date: 20110831
  Serious: Yes (Hospitalization, Disabling)
  Sender: FDA-Public Use
  Company Number: None

PATIENT
  Sex: Male
  Weight: 102.3 kg

DRUGS (1)
  1. LEVAQUIN [Suspect]
     Indication: SURGERY
     Dosage: LEVAQUIN (TARGET PHARMACY) 1 WEEK ORAL PILL
     Route: 048
     Dates: start: 20100711, end: 20100718

REACTIONS (2)
  - BALANCE DISORDER [None]
  - TENDON RUPTURE [None]
